FAERS Safety Report 8178514-0 (Version None)
Quarter: 2012Q1

REPORT INFORMATION
  Report Type: 
  Country: None (occurrence: None)
  Receive Date: 20120301
  Receipt Date: 20120222
  Transmission Date: 20120608
  Serious: Yes (Other)
  Sender: FDA-Public Use
  Company Number: PHHY2012TW015313

PATIENT
  Age: 37 Year
  Sex: Female

DRUGS (8)
  1. METHYLPREDNISOLONE [Suspect]
     Indication: MYXOEDEMA
  2. IMMUNE GLOBULIN (HUMAN) [Concomitant]
     Dosage: 24 G, QD
  3. QUETIAPINE [Concomitant]
     Indication: MAJOR DEPRESSION
     Dosage: 275 MG, QD
     Route: 048
  4. PREDNISONE TAB [Suspect]
     Indication: MYXOEDEMA
  5. PREDNISONE TAB [Suspect]
     Indication: SCLEROEDEMA
     Dosage: 20 MG, QD
  6. ZOLPIDEM [Concomitant]
     Indication: MAJOR DEPRESSION
     Dosage: 20 MG, QD
  7. MIRTAZAPINE [Concomitant]
     Indication: MAJOR DEPRESSION
     Dosage: 60 MG, QD
  8. METHYLPREDNISOLONE [Suspect]
     Indication: SCLEROEDEMA
     Dosage: 500 MG, PER MONTH
     Route: 042

REACTIONS (14)
  - DEPRESSION [None]
  - INSOMNIA [None]
  - SUBCUTANEOUS NODULE [None]
  - ADIPOSIS DOLOROSA [None]
  - MUSCULAR WEAKNESS [None]
  - SWELLING [None]
  - PAIN [None]
  - WEIGHT INCREASED [None]
  - MAJOR DEPRESSION [None]
  - FATIGUE [None]
  - TACHYCARDIA [None]
  - SKIN MASS [None]
  - IRRITABILITY [None]
  - ABDOMINAL DISTENSION [None]
